FAERS Safety Report 5681024-3 (Version None)
Quarter: 2008Q1

REPORT INFORMATION
  Report Type: 
  Country: None (occurrence: None)
  Receive Date: 20080326
  Receipt Date: 20080320
  Transmission Date: 20080703
  Serious: Yes (Other)
  Sender: FDA-Public Use
  Company Number: US-PFIZER INC-2008025951

PATIENT
  Sex: Female
  Weight: 77.272 kg

DRUGS (12)
  1. XALATAN [Suspect]
     Route: 047
  2. LOTREL [Concomitant]
  3. TRICOR [Concomitant]
  4. ELMIRON [Concomitant]
  5. LEVOXYL [Concomitant]
  6. PREMARIN [Concomitant]
  7. FUROSEMIDE [Concomitant]
  8. POTASSIUM CHLORIDE [Concomitant]
  9. MOBIC [Concomitant]
  10. ZOLOFT [Concomitant]
  11. CRANBERRY [Concomitant]
  12. MUSCLE RELAXANTS [Concomitant]

REACTIONS (2)
  - CATARACT [None]
  - DRUG INEFFECTIVE [None]
